FAERS Safety Report 6006948-9 (Version None)
Quarter: 2008Q4

REPORT INFORMATION
  Report Type: 
  Country: None (occurrence: None)
  Receive Date: 20081217
  Receipt Date: 20071128
  Transmission Date: 20090506
  Serious: Yes (Hospitalization)
  Sender: FDA-Public Use
  Company Number: US-ASTRAZENECA-2007UW27287

PATIENT
  Age: 48 Year
  Sex: Male

DRUGS (13)
  1. CRESTOR [Suspect]
     Route: 048
     Dates: start: 20030101
  2. TOPROL-XL [Suspect]
     Route: 048
  3. XANAX [Concomitant]
  4. OXYCONTIN [Concomitant]
  5. LECINIPROL [Concomitant]
  6. LEXAPRO [Concomitant]
  7. LASIX [Concomitant]
  8. NORCO [Concomitant]
  9. COLCHICINE [Concomitant]
  10. ALLOPURINOL [Concomitant]
  11. RISPERDAL [Concomitant]
  12. LEMRICATOL [Concomitant]
  13. LUNESTA [Concomitant]

REACTIONS (2)
  - BLOOD CREATINE PHOSPHOKINASE INCREASED [None]
  - RHABDOMYOLYSIS [None]
